FAERS Safety Report 11516332 (Version 1)
Quarter: 2015Q3

REPORT INFORMATION
  Report Type: Spontaneous
  Country: RU (occurrence: RU)
  Receive Date: 20150917
  Receipt Date: 20150917
  Transmission Date: 20151125
  Serious: Yes (Other)
  Sender: FDA-Public Use
  Company Number: RU-PFIZER INC-2015299818

PATIENT
  Age: 59 Year
  Sex: Female

DRUGS (3)
  1. SUTENT [Suspect]
     Active Substance: SUNITINIB MALATE
     Indication: METASTATIC RENAL CELL CARCINOMA
     Dosage: 50 MG, CYCLIC, (4 WEEKS OF INTAKE + 2 WEEKS OFF)
     Route: 048
     Dates: start: 201312
  2. ESSENTIALE [Concomitant]
     Dosage: UNK
     Route: 042
  3. ACIDUM ZOLEDRONICUM [Concomitant]
     Indication: METASTASES TO SPINE
     Dosage: UNK, CYCLIC, EVERY 28 DAYS
     Route: 042

REACTIONS (3)
  - Creatinine renal clearance decreased [Not Recovered/Not Resolved]
  - Anaemia [Not Recovered/Not Resolved]
  - Hypertension [Not Recovered/Not Resolved]

NARRATIVE: CASE EVENT DATE: 201508
